FAERS Safety Report 16271047 (Version 1)
Quarter: 2019Q2

REPORT INFORMATION
  Report Type: Report from Study
  Country: DE (occurrence: DE)
  Receive Date: 20190503
  Receipt Date: 20190503
  Transmission Date: 20190711
  Serious: Yes (Hospitalization, Other)
  Sender: FDA-Public Use
  Company Number: DE-TEVA-2019-DE-1043835

PATIENT
  Age: 46 Year
  Sex: Female

DRUGS (8)
  1. HYDROCORTISONE COMPARATOR [Suspect]
     Active Substance: HYDROCORTISONE
     Indication: ADRENAL INSUFFICIENCY
     Dosage: 10 MG, 2X/DAY:BID
     Route: 048
     Dates: start: 2015
  2. VITAMIN D2 [Concomitant]
     Active Substance: ERGOCALCIFEROL
     Indication: VITAMIN D DEFICIENCY
     Dosage: 1000 IU, 1X/DAY:QD
     Route: 048
     Dates: start: 2012
  3. HYDROCORTISONE. [Suspect]
     Active Substance: HYDROCORTISONE
     Dosage: P 20, HC 15, MILLIGRAM, 3X/DAY:TID
     Route: 048
     Dates: start: 20160206
  4. SELENIUM [Concomitant]
     Active Substance: SELENIUM
     Indication: ADDISON^S DISEASE
     Dosage: 200 MICROGRAM, 1X/DAY:QD
     Route: 048
     Dates: start: 2012
  5. FLUDROCORTISONE [Concomitant]
     Active Substance: FLUDROCORTISONE
     Indication: ADDISON^S DISEASE
     Dosage: 0.1 MG, 1X/DAY:QD
     Route: 048
     Dates: start: 2011
  6. CHOLECALCIFEROL [Concomitant]
     Active Substance: CHOLECALCIFEROL
     Indication: VITAMIN D DEFICIENCY
  7. HYDROCORTISONE. [Suspect]
     Active Substance: HYDROCORTISONE
     Indication: ADRENAL INSUFFICIENCY
     Dosage: 20 MG, 1X/DAY:QD
     Route: 048
     Dates: start: 2015
  8. HYDROCORTISONE COMPARATOR [Suspect]
     Active Substance: HYDROCORTISONE
     Dosage: 5 MG, 2X/DAY:BID
     Route: 048
     Dates: start: 2015

REACTIONS (1)
  - Adrenocortical insufficiency acute [Recovered/Resolved]

NARRATIVE: CASE EVENT DATE: 20151017
